FAERS Safety Report 4446469-8 (Version None)
Quarter: 2004Q3

REPORT INFORMATION
  Report Type: 
  Country: None (occurrence: None)
  Receive Date: 20040902
  Receipt Date: 20040818
  Transmission Date: 20050211
  Serious: Yes (Death)
  Sender: FDA-Public Use
  Company Number: DEU-2004-0000843

PATIENT
  Age: 24 Year
  Sex: Male

DRUGS (5)
  1. MORPHINE SULFATE [Suspect]
     Indication: DRUG USE FOR UNKNOWN INDICATION
     Dosage: INTRAVENOUS
     Route: 042
     Dates: start: 20030310
  2. OXAZEPAM [Suspect]
     Indication: DRUG USE FOR UNKNOWN INDICATION
     Dosage: ORAL
     Route: 048
     Dates: start: 20040310
  3. NORDAZEPAM [Suspect]
  4. CANNABIS [Concomitant]
  5. ALCOHOL [Concomitant]

REACTIONS (7)
  - BLOOD ALCOHOL INCREASED [None]
  - BRAIN OEDEMA [None]
  - DIAPHRAGMATIC PARALYSIS [None]
  - POLYSUBSTANCE ABUSE [None]
  - THERAPEUTIC AGENT TOXICITY [None]
  - TOXICOLOGIC TEST ABNORMAL [None]
  - URINE ALCOHOL TEST POSITIVE [None]
